FAERS Safety Report 25268049 (Version 1)
Quarter: 2025Q2

REPORT INFORMATION
  Report Type: Spontaneous
  Country: US (occurrence: None)
  Receive Date: 20250501
  Receipt Date: 20250501
  Transmission Date: 20250716
  Serious: Yes (Other)
  Sender: FDA-CTU
  Company Number: None

PATIENT
  Age: 68 Year
  Sex: Male
  Weight: 99.79 kg

DRUGS (1)
  1. PIPERACILLIN AND TAZOBACTAM [Suspect]
     Active Substance: PIPERACILLIN SODIUM\TAZOBACTAM SODIUM
     Dosage: OTHER STRENGTH : 13.5 GM IN 240 ML ;?FREQUENCY : DAILY;?
     Route: 042
     Dates: start: 20250404, end: 20250501

REACTIONS (3)
  - Device malfunction [None]
  - Device delivery system issue [None]
  - Product quality issue [None]

NARRATIVE: CASE EVENT DATE: 20250417
